FAERS Safety Report 8766848 (Version 1)
Quarter: 2012Q4

REPORT INFORMATION
  Report Type: 
  Country: US (occurrence: US)
  Receive Date: 20120904
  Receipt Date: 20120904
  Transmission Date: 20130627
  Serious: No
  Sender: FDA-Public Use
  Company Number: US-B.I. PHARMACEUTICALS,INC./RIDGEFIELD-2012-BP-20910BP

PATIENT
  Age: 47 Year
  Sex: Female

DRUGS (12)
  1. SPIRIVA [Suspect]
     Indication: CHRONIC OBSTRUCTIVE PULMONARY DISEASE
     Dosage: 18 mcg
     Route: 055
     Dates: start: 20120823, end: 20120825
  2. DILTIAZEM HCL [Concomitant]
     Indication: HYPERTENSION
     Dosage: 120 mg
     Route: 048
     Dates: start: 2010
  3. NEXIUM [Concomitant]
     Indication: OESOPHAGEAL DISORDER
     Dosage: 80 mg
     Route: 048
     Dates: start: 2002
  4. ZOLOFT [Concomitant]
     Indication: POST-TRAUMATIC STRESS DISORDER
     Dosage: 50 mg
     Route: 048
     Dates: start: 2011
  5. RHINOCORT [Concomitant]
     Indication: SEASONAL ALLERGY
     Route: 045
     Dates: start: 2002
  6. POTASSIUM [Concomitant]
     Indication: BLOOD POTASSIUM DECREASED
     Dosage: 10 mEq
     Route: 048
     Dates: start: 201201
  7. SYMBICORT [Concomitant]
     Indication: ASTHMA
     Dosage: 4 puf
     Route: 055
     Dates: start: 201207
  8. DIOVAN [Concomitant]
     Indication: HYPERTENSION
     Dosage: 320 mg
     Route: 048
     Dates: start: 2010
  9. ZYRTEC [Concomitant]
     Indication: ASTHMA
     Route: 048
     Dates: start: 2002
  10. PROVENTIL [Concomitant]
     Indication: ASTHMA
     Dates: start: 2002
  11. SINGULAIR [Concomitant]
     Indication: ASTHMA
     Dosage: 10 mg
     Route: 048
     Dates: start: 2002
  12. SYNTHROID [Concomitant]
     Indication: HYPOTHYROIDISM
     Dosage: 0.1 mcg
     Route: 048
     Dates: start: 2001

REACTIONS (3)
  - Chest discomfort [Recovered/Resolved]
  - Sinus congestion [Recovered/Resolved]
  - Eye swelling [Recovered/Resolved]
